FAERS Safety Report 25362556 (Version 1)
Quarter: 2025Q2

REPORT INFORMATION
  Report Type: Spontaneous
  Country: US (occurrence: None)
  Receive Date: 20250524
  Receipt Date: 20250524
  Transmission Date: 20250716
  Serious: Yes (Other)
  Sender: FDA-CTU
  Company Number: None

PATIENT
  Age: 27 Year
  Sex: Female
  Weight: 117 kg

DRUGS (1)
  1. ZYRTEC [Suspect]
     Active Substance: CETIRIZINE HYDROCHLORIDE
     Indication: Seasonal allergy

REACTIONS (9)
  - Withdrawal syndrome [None]
  - Pruritus [None]
  - Hot flush [None]
  - Dizziness [None]
  - Insomnia [None]
  - Quality of life decreased [None]
  - Sleep disorder [None]
  - Activities of daily living decreased [None]
  - Sensitive skin [None]

NARRATIVE: CASE EVENT DATE: 20160520
